FAERS Safety Report 15660857 (Version 2)
Quarter: 2018Q4

REPORT INFORMATION
  Report Type: Spontaneous
  Country: GR (occurrence: GR)
  Receive Date: 20181127
  Receipt Date: 20181226
  Transmission Date: 20190205
  Serious: Yes (Hospitalization)
  Sender: FDA-Public Use
  Company Number: GR-MYLANLABS-2018M1087673

PATIENT
  Age: 19 Year
  Sex: Female

DRUGS (3)
  1. BUDESONIDE W/FORMOTEROL [Suspect]
     Active Substance: BUDESONIDE\FORMOTEROL
     Indication: ASTHMA
     Dosage: 160/4.5 MICROGRAMS, BID
  2. PREDNISOLONE. [Suspect]
     Active Substance: PREDNISOLONE
     Indication: ASTHMA
     Dosage: 10 MILLIGRAM, QD
     Route: 048
  3. MONTELUKAST [Suspect]
     Active Substance: MONTELUKAST SODIUM
     Indication: ASTHMA
     Dosage: 10 MILLIGRAM, QD

REACTIONS (1)
  - Treatment noncompliance [Unknown]
